FAERS Safety Report 21644778 (Version 1)
Quarter: 2022Q4

REPORT INFORMATION
  Report Type: Spontaneous
  Country: CA (occurrence: CA)
  Receive Date: 20221125
  Receipt Date: 20221125
  Transmission Date: 20230112
  Serious: Yes (Other)
  Sender: FDA-Public Use
  Company Number: CA-ADVANZ PHARMA-202210006953

PATIENT
  Age: 39 Year
  Sex: Female

DRUGS (2)
  1. OCALIVA [Suspect]
     Active Substance: OBETICHOLIC ACID
     Indication: Primary biliary cholangitis
     Dosage: 5 MG, QD, OCALIVA
     Route: 048
     Dates: start: 20171012
  2. URSO [Concomitant]
     Active Substance: URSODIOL
     Dosage: 1000 MG, QD
     Dates: start: 2013

REACTIONS (4)
  - Respiratory syncytial virus bronchiolitis [Not Recovered/Not Resolved]
  - Illness [Unknown]
  - Cough [Unknown]
  - Alanine aminotransferase abnormal [Unknown]

NARRATIVE: CASE EVENT DATE: 20220629
